FAERS Safety Report 9038903 (Version 1)
Quarter: 2013Q1

REPORT INFORMATION
  Report Type: Spontaneous
  Country: US (occurrence: None)
  Receive Date: 20130123
  Receipt Date: 20130123
  Transmission Date: 20140127
  Serious: No
  Sender: FDA-Public Use
  Company Number: None

PATIENT
  Sex: Female
  Weight: 65.32 kg

DRUGS (1)
  1. MYRBETRIQ [Suspect]
     Dates: start: 20130108

REACTIONS (2)
  - Dry mouth [None]
  - Swollen tongue [None]
